FAERS Safety Report 6936682-X (Version None)
Quarter: 2010Q3

REPORT INFORMATION
  Report Type: 
  Country: None (occurrence: None)
  Receive Date: 20100823
  Receipt Date: 20100812
  Transmission Date: 20110219
  Serious: Yes (Hospitalization)
  Sender: FDA-Public Use
  Company Number: US-ASTRAZENECA-2010SE38183

PATIENT
  Age: 81 Year
  Sex: Male

DRUGS (8)
  1. SYMBICORT [Suspect]
     Dosage: 160/4.5 MCG, TWO PUFFS
     Route: 055
  2. VERAPAMIL [Concomitant]
  3. ALLOPURINOL [Concomitant]
  4. SOTALOL HCL [Concomitant]
  5. ASPIRIN [Concomitant]
  6. XOPENEX [Concomitant]
  7. IPRATROPIUM BROMIDE [Concomitant]
  8. BUDESONIDE [Concomitant]
     Route: 055

REACTIONS (4)
  - DRUG HYPERSENSITIVITY [None]
  - ILL-DEFINED DISORDER [None]
  - PRURITUS [None]
  - RASH [None]
